FAERS Safety Report 8433964-X (Version None)
Quarter: 2012Q2

REPORT INFORMATION
  Report Type: 
  Country: None (occurrence: None)
  Receive Date: 20120613
  Receipt Date: 20120607
  Transmission Date: 20120825
  Serious: Yes (Hospitalization, Other)
  Sender: FDA-Public Use
  Company Number: US-TEVA-342264USA

PATIENT
  Sex: Male

DRUGS (10)
  1. DEXAMETHASONE [Suspect]
  2. BACTRIM [Concomitant]
     Dates: start: 20120513, end: 20120516
  3. METHOTREXATE [Suspect]
  4. ONDANSETRON [Concomitant]
     Dates: start: 20120513, end: 20120516
  5. GLUTAMIC ACID [Concomitant]
     Dates: start: 20120513, end: 20120516
  6. MORPHINE [Concomitant]
     Dates: start: 20120513, end: 20120516
  7. VINCRISTINE [Suspect]
     Indication: ACUTE LYMPHOCYTIC LEUKAEMIA
  8. LORAZEPAM [Concomitant]
     Dates: start: 20120513, end: 20120516
  9. DASATINIB [Suspect]
     Indication: ACUTE LYMPHOCYTIC LEUKAEMIA
     Dosage: ONE DAY
     Route: 048
     Dates: start: 20120426
  10. DOXORUBICIN HCL [Suspect]

REACTIONS (1)
  - FEBRILE NEUTROPENIA [None]
